FAERS Safety Report 15814463 (Version 2)
Quarter: 2019Q1

REPORT INFORMATION
  Report Type: Report from Study
  Country: US (occurrence: MX)
  Receive Date: 20190111
  Receipt Date: 20190206
  Transmission Date: 20190417
  Serious: Yes (Hospitalization)
  Sender: FDA-Public Use
  Company Number: US-PFIZER INC-2019012615

PATIENT
  Age: 83 Year
  Sex: Male
  Weight: 67 kg

DRUGS (8)
  1. PALBOCICLIB [Suspect]
     Active Substance: PALBOCICLIB
     Indication: PROSTATE CANCER METASTATIC
     Dosage: 125 MG, DAILY
     Route: 048
     Dates: start: 20150414
  2. FAMOTIDINE. [Concomitant]
     Active Substance: FAMOTIDINE
  3. CAPTOPRIL. [Concomitant]
     Active Substance: CAPTOPRIL
  4. LEUPROLIDE [LEUPRORELIN] [Concomitant]
  5. TAMSULOSIN [Concomitant]
     Active Substance: TAMSULOSIN
  6. BICALUTAMIDE. [Concomitant]
     Active Substance: BICALUTAMIDE
  7. TERAZOSIN [Concomitant]
     Active Substance: TERAZOSIN\TERAZOSIN HYDROCHLORIDE
  8. VITAMIN D3 [Concomitant]
     Active Substance: CHOLECALCIFEROL

REACTIONS (1)
  - Cerebrovascular accident [Recovered/Resolved]

NARRATIVE: CASE EVENT DATE: 201811
